FAERS Safety Report 6270285-8 (Version None)
Quarter: 2009Q3

REPORT INFORMATION
  Report Type: 
  Country: None (occurrence: None)
  Receive Date: 20090716
  Receipt Date: 20090710
  Transmission Date: 20100115
  Serious: Yes (Other)
  Sender: FDA-Public Use
  Company Number: CA-ELI_LILLY_AND_COMPANY-CA200907002359

PATIENT
  Sex: Male

DRUGS (3)
  1. HUMALOG [Suspect]
     Dosage: 13 U, EACH MORNING
  2. HUMALOG [Suspect]
     Dosage: 5 U, DAILY (1/D)
  3. HUMALOG [Suspect]
     Dosage: 12 U, EACH EVENING

REACTIONS (2)
  - CORONARY ARTERY OCCLUSION [None]
  - HYPOGLYCAEMIC UNCONSCIOUSNESS [None]
